FAERS Safety Report 5221175-0 (Version None)
Quarter: 2007Q1

REPORT INFORMATION
  Report Type: 
  Country: None (occurrence: None)
  Receive Date: 20061201
  Receipt Date: 20060911
  Transmission Date: 20070707
  Serious: No
  Sender: FDA-Public Use
  Company Number: 2006PV015374

PATIENT
  Age: 71 Year
  Sex: Female
  Weight: 104.3273 kg

DRUGS (7)
  1. BYETTA [Suspect]
     Indication: DIABETES MELLITUS NON-INSULIN-DEPENDENT
     Dosage: 5 MCG;BID;SC
     Route: 058
     Dates: start: 20060322
  2. BYETTA [Suspect]
  3. GLUCOPHAGE [Concomitant]
  4. METHOTREXATE [Concomitant]
  5. MOBIC [Concomitant]
  6. PLAQUENIL [Concomitant]
  7. NEXIUM [Concomitant]

REACTIONS (10)
  - BLOOD CREATININE INCREASED [None]
  - BLOOD GLUCOSE INCREASED [None]
  - DECREASED APPETITE [None]
  - DIARRHOEA [None]
  - INJECTION SITE PAIN [None]
  - NASOPHARYNGITIS [None]
  - NAUSEA [None]
  - RASH [None]
  - VOMITING [None]
  - WEIGHT DECREASED [None]
